FAERS Safety Report 23597160 (Version 1)
Quarter: 2024Q1

REPORT INFORMATION
  Report Type: Spontaneous
  Country: US (occurrence: US)
  Receive Date: 20240305
  Receipt Date: 20240305
  Transmission Date: 20240409
  Serious: No
  Sender: FDA-Public Use
  Company Number: None

PATIENT
  Age: 49 Year
  Sex: Female

DRUGS (6)
  1. QUETIAPINE [Suspect]
     Active Substance: QUETIAPINE
     Indication: Psychotic disorder
  2. QUETIAPINE [Suspect]
     Active Substance: QUETIAPINE
     Indication: Major depression
  3. QUETIAPINE [Suspect]
     Active Substance: QUETIAPINE
     Indication: Catatonia
  4. LORAZEPAM [Concomitant]
     Active Substance: LORAZEPAM
     Indication: Catatonia
  5. LORAZEPAM [Concomitant]
     Active Substance: LORAZEPAM
     Indication: Major depression
  6. LORAZEPAM [Concomitant]
     Active Substance: LORAZEPAM
     Indication: Psychotic disorder

REACTIONS (2)
  - Condition aggravated [Recovering/Resolving]
  - Catatonia [Recovering/Resolving]
